FAERS Safety Report 11068391 (Version 1)
Quarter: 2015Q2

REPORT INFORMATION
  Report Type: Spontaneous
  Country: US (occurrence: US)
  Receive Date: 20150427
  Receipt Date: 20150427
  Transmission Date: 20150821
  Serious: No
  Sender: FDA-Public Use
  Company Number: US-ASTRAZENECA-2014SE26188

PATIENT
  Sex: Female
  Weight: 68 kg

DRUGS (5)
  1. RHINOCORT AQUA [Suspect]
     Active Substance: BUDESONIDE
     Indication: MULTIPLE ALLERGIES
     Dosage: 1 SPRAY EACH NOSTRIL DAILY
     Route: 045
     Dates: start: 20140409, end: 20140412
  2. PRILOSEC [Suspect]
     Active Substance: OMEPRAZOLE MAGNESIUM
     Dosage: GENERIC
     Route: 048
  3. VALIUM [Concomitant]
     Active Substance: DIAZEPAM
     Indication: MYALGIA
     Route: 048
  4. RHINOCORT AQUA [Suspect]
     Active Substance: BUDESONIDE
     Indication: MULTIPLE ALLERGIES
     Dosage: 32MCG ONE SPRAY IN EACH NOSTRIL
     Route: 045
     Dates: start: 2005, end: 201311
  5. TAGAMET [Concomitant]
     Active Substance: CIMETIDINE
     Indication: GASTRIC DISORDER
     Route: 048

REACTIONS (6)
  - Drug hypersensitivity [Not Recovered/Not Resolved]
  - Nervousness [Not Recovered/Not Resolved]
  - Hypersensitivity [Not Recovered/Not Resolved]
  - Intentional product misuse [Unknown]
  - Upper-airway cough syndrome [Recovering/Resolving]
  - Seasonal allergy [Recovering/Resolving]

NARRATIVE: CASE EVENT DATE: 20140409
